FAERS Safety Report 16305113 (Version 1)
Quarter: 2019Q2

REPORT INFORMATION
  Report Type: Spontaneous
  Country: US (occurrence: US)
  Receive Date: 20190408
  Receipt Date: 20190408
  Transmission Date: 20190711
  Serious: Yes (Hospitalization)
  Sender: FDA-Public Use
  Company Number: None

PATIENT
  Age: 59 Year
  Sex: Female

DRUGS (1)
  1. TRETINOIN CAP [Suspect]
     Active Substance: TRETINOIN
     Dates: start: 201902

REACTIONS (1)
  - Leukaemia [None]

NARRATIVE: CASE EVENT DATE: 20190220
